FAERS Safety Report 4838096-5 (Version None)
Quarter: 2005Q4

REPORT INFORMATION
  Report Type: 
  Country: None (occurrence: None)
  Receive Date: 20051123
  Receipt Date: 20051123
  Transmission Date: 20060501
  Serious: Yes (Hospitalization)
  Sender: FDA-Public Use
  Company Number: None

PATIENT
  Age: 80 Year
  Sex: Female

DRUGS (11)
  1. LOTREL [Suspect]
     Indication: HYPERTENSION
     Dosage: 5/20 PO QD
     Route: 048
  2. LOPERAMIDE [Concomitant]
  3. NORVASC [Concomitant]
  4. PHENERGAN W/ CODEINE [Concomitant]
  5. DARVOCET [Concomitant]
  6. IMDUR [Concomitant]
  7. PLAVIX [Concomitant]
  8. LASIX [Concomitant]
  9. LOVASTATIN [Concomitant]
  10. ASPIRIN [Concomitant]
  11. FLONASE [Concomitant]

REACTIONS (2)
  - COUGH [None]
  - INCONTINENCE [None]
